FAERS Safety Report 10793002 (Version 1)
Quarter: 2015Q1

REPORT INFORMATION
  Report Type: Spontaneous
  Country: US (occurrence: None)
  Receive Date: 20150212
  Receipt Date: 20150212
  Transmission Date: 20150721
  Serious: Yes (Death)
  Sender: FDA-Public Use
  Company Number: None

PATIENT
  Age: 76 Year
  Sex: Female

DRUGS (12)
  1. VITAMIN D [Concomitant]
     Active Substance: CHOLECALCIFEROL
  2. OCUVITE [Concomitant]
     Active Substance: VITAMINS
  3. LEXAPRO [Concomitant]
     Active Substance: ESCITALOPRAM OXALATE
  4. MULTIVITAMIN [Concomitant]
     Active Substance: VITAMINS
  5. METROLOTION [Concomitant]
     Active Substance: METRONIDAZOLE
  6. LANSOPRAZOLE. [Concomitant]
     Active Substance: LANSOPRAZOLE
  7. STELARA [Suspect]
     Active Substance: USTEKINUMAB
     Indication: PSORIASIS
     Dosage: 45MG/0.5ML, EVERY 3 MONTHS SUBCUTANEOUSLY
     Route: 058
     Dates: start: 20120427, end: 20140715
  8. QUERCETIN [Concomitant]
     Active Substance: QUERCETIN
  9. STELARA [Concomitant]
     Active Substance: USTEKINUMAB
  10. ENBREL [Concomitant]
     Active Substance: ETANERCEPT
  11. CALCIUM/D3 [Concomitant]
     Active Substance: CALCIUM\CHOLECALCIFEROL
  12. CENTAVITE AZ [Concomitant]

REACTIONS (1)
  - Death [None]

NARRATIVE: CASE EVENT DATE: 20150114
